FAERS Safety Report 8418998-3 (Version None)
Quarter: 2012Q2

REPORT INFORMATION
  Report Type: 
  Country: None (occurrence: None)
  Receive Date: 20120607
  Receipt Date: 20120601
  Transmission Date: 20120825
  Serious: Yes (Death)
  Sender: FDA-Public Use
  Company Number: PHHY2012CA048227

PATIENT

DRUGS (1)
  1. IMATINIB MESYLATE [Suspect]
     Indication: ACUTE LYMPHOCYTIC LEUKAEMIA
     Dosage: 400 MG DAILY (DAY2 TO DAY14)

REACTIONS (1)
  - MENINGITIS PNEUMOCOCCAL [None]
